FAERS Safety Report 6552940-5 (Version None)
Quarter: 2010Q1

REPORT INFORMATION
  Report Type: 
  Country: None (occurrence: None)
  Receive Date: 20100122
  Receipt Date: 20100107
  Transmission Date: 20100710
  Serious: Yes (Hospitalization)
  Sender: FDA-Public Use
  Company Number: 2010AL000215

PATIENT
  Age: 29 Year
  Sex: Female

DRUGS (4)
  1. EPIRUBICIN HYDROCHLORIDE [Suspect]
     Indication: NEOPLASM
     Dosage: 165 MG; QD; IV
     Route: 042
     Dates: start: 20090326, end: 20090326
  2. NEULASTA [Concomitant]
  3. FLUOROURACIL [Concomitant]
  4. CYCLOPHOSPHAMIDE [Concomitant]

REACTIONS (5)
  - ABDOMINAL PAIN [None]
  - BLOOD PRESSURE DIASTOLIC DECREASED [None]
  - FEBRILE NEUTROPENIA [None]
  - HAEMOGLOBIN DECREASED [None]
  - TACHYCARDIA [None]
